FAERS Safety Report 16232009 (Version 4)
Quarter: 2021Q1

REPORT INFORMATION
  Report Type: Other
  Country: US (occurrence: US)
  Receive Date: 20190424
  Receipt Date: 20210309
  Transmission Date: 20210419
  Serious: Yes (Hospitalization, Other)
  Sender: FDA-Public Use
  Company Number: US-ROCHE-2305416

PATIENT
  Age: 40 Year
  Sex: Female
  Weight: 45.4 kg

DRUGS (3)
  1. OCREVUS [Suspect]
     Active Substance: OCRELIZUMAB
     Indication: PRIMARY PROGRESSIVE MULTIPLE SCLEROSIS
     Dosage: FIRST HALF DOSE ;ONGOING: NO?DATE OF TREATMENT: 07/OCT/2019
     Route: 042
     Dates: start: 20180917
  2. OCREVUS [Suspect]
     Active Substance: OCRELIZUMAB
     Dosage: ONGOING: YES
     Route: 042
     Dates: start: 201810
  3. OCREVUS [Suspect]
     Active Substance: OCRELIZUMAB
     Dosage: ONGOING:UNKNOWN
     Route: 042
     Dates: start: 20190401

REACTIONS (6)
  - Incoherent [Recovered/Resolved]
  - Pneumonia [Recovered/Resolved]
  - Rhinorrhoea [Recovered/Resolved]
  - Therapy non-responder [Unknown]
  - Myocardial infarction [Recovered/Resolved]
  - Coma [Recovered/Resolved]

NARRATIVE: CASE EVENT DATE: 201904
